FAERS Safety Report 6863108-7 (Version None)
Quarter: 2010Q3

REPORT INFORMATION
  Report Type: 
  Country: None (occurrence: None)
  Receive Date: 20100719
  Receipt Date: 20100707
  Transmission Date: 20110219
  Serious: Yes (Other)
  Sender: FDA-Public Use
  Company Number: 015188

PATIENT
  Sex: Female
  Weight: 75.7 kg

DRUGS (10)
  1. CIMZIA [Suspect]
     Indication: RHEUMATOID ARTHRITIS
     Dosage: 400 MG 1X 2 WEEKS SUBCUTANEOUS
     Route: 058
     Dates: start: 20100414, end: 20100428
  2. PREDNISONE [Concomitant]
  3. CETIRIZIDE [Concomitant]
  4. VITAMIN B-12 [Concomitant]
  5. ETIDRONAGE DISODIUM [Concomitant]
  6. VITAMIN D [Concomitant]
  7. EPIEN /00003901/ [Concomitant]
  8. RABEPRAZOLE SODIUM [Concomitant]
  9. ADVAIR DISKUS 100/50 [Concomitant]
  10. VENTOLIN [Concomitant]

REACTIONS (4)
  - DIARRHOEA [None]
  - GALLBLADDER OPERATION [None]
  - POST PROCEDURAL COMPLICATION [None]
  - WOUND SECRETION [None]
